FAERS Safety Report 9170359 (Version 2)
Quarter: 2013Q2

REPORT INFORMATION
  Report Type: Spontaneous
  Country: US (occurrence: US)
  Receive Date: 20130319
  Receipt Date: 20130621
  Transmission Date: 20140414
  Serious: Yes (Hospitalization)
  Sender: FDA-Public Use
  Company Number: US-BAYER-2013-031205

PATIENT
  Age: 19 Year
  Sex: Female
  Weight: 58.96 kg

DRUGS (3)
  1. YASMIN [Suspect]
     Indication: ACNE
     Dosage: UNK
     Dates: start: 200312, end: 200703
  2. IBUPROFEN [Concomitant]
     Dosage: UNK
     Dates: start: 200303
  3. DOXYCLINE [Concomitant]
     Indication: ACNE
     Dosage: UNK
     Dates: start: 200309, end: 200803

REACTIONS (6)
  - Pulmonary embolism [None]
  - Injury [None]
  - Pain [None]
  - Pain [None]
  - Dyspnoea [None]
  - Chest pain [None]
